FAERS Safety Report 5164354-3 (Version None)
Quarter: 2006Q4

REPORT INFORMATION
  Report Type: 
  Country: None (occurrence: None)
  Receive Date: 20061205
  Receipt Date: 20060328
  Transmission Date: 20070319
  Serious: Yes (Death, Hospitalization)
  Sender: FDA-Public Use
  Company Number: PHEH2006US04079

PATIENT
  Age: 39 Year
  Sex: Male
  Weight: 86.621 kg

DRUGS (5)
  1. EXJADE [Suspect]
     Indication: HAEMOSIDEROSIS
     Dosage: 1750 MG, QD
     Dates: start: 20060308, end: 20060322
  2. PREDNISONE TAB [Concomitant]
     Indication: ANAEMIA HAEMOLYTIC AUTOIMMUNE
     Dosage: 5 MG, QD/WEAN
  3. TESTOSTERONE [Concomitant]
     Indication: HYPOGONADISM
     Dosage: 200MG Q2WKS SC
     Route: 058
     Dates: start: 20030101, end: 20060101
  4. CALCIUM [Concomitant]
     Indication: ARTHRITIS
     Dosage: 1 G, QD
     Dates: start: 20030101, end: 20060101
  5. DESFERAL [Concomitant]
     Dosage: 1764MG QOW X 1 WEEK
     Route: 058
     Dates: start: 20050101, end: 20060101

REACTIONS (41)
  - ACUTE RESPIRATORY DISTRESS SYNDROME [None]
  - ALANINE AMINOTRANSFERASE INCREASED [None]
  - ANAEMIA [None]
  - ASPARTATE AMINOTRANSFERASE INCREASED [None]
  - BLOOD CREATININE INCREASED [None]
  - BLOOD DISORDER [None]
  - BLOOD UREA INCREASED [None]
  - BONE MARROW FAILURE [None]
  - BREATH SOUNDS ABNORMAL [None]
  - CARDIAC ARREST [None]
  - CHILLS [None]
  - CIRCULATORY COLLAPSE [None]
  - COAGULOPATHY [None]
  - CONDITION AGGRAVATED [None]
  - CONGENITAL APLASTIC ANAEMIA [None]
  - COUGH [None]
  - DEHYDRATION [None]
  - DIARRHOEA [None]
  - DYSPNOEA [None]
  - HEADACHE [None]
  - HEPATIC FAILURE [None]
  - INCREASED BRONCHIAL SECRETION [None]
  - INSOMNIA [None]
  - LEUKOPENIA [None]
  - LUNG DISORDER [None]
  - METABOLIC ACIDOSIS [None]
  - MULTI-ORGAN FAILURE [None]
  - MYELODYSPLASTIC SYNDROME [None]
  - NAUSEA [None]
  - PNEUMONIA [None]
  - PULMONARY OEDEMA [None]
  - PYREXIA [None]
  - RENAL FAILURE ACUTE [None]
  - RENAL TUBULAR NECROSIS [None]
  - RESPIRATORY FAILURE [None]
  - SEPSIS [None]
  - TACHYCARDIA [None]
  - THROMBOCYTOPENIA [None]
  - UPPER RESPIRATORY TRACT INFECTION [None]
  - URINE OUTPUT DECREASED [None]
  - VOMITING [None]
